FAERS Safety Report 8793636 (Version 2)
Quarter: 2012Q4

REPORT INFORMATION
  Report Type: 
  Country: CN (occurrence: CN)
  Receive Date: 20120917
  Receipt Date: 20120928
  Transmission Date: 20130627
  Serious: Yes (Hospitalization)
  Sender: FDA-Public Use
  Company Number: CN-GLAXOSMITHKLINE-B0830813A

PATIENT
  Age: 37 Year
  Sex: Female

DRUGS (2)
  1. LAMICTAL [Suspect]
     Indication: BIPOLAR DISORDER
     Route: 048
     Dates: start: 20100907, end: 20100929
  2. SODIUM VALPROATE [Suspect]
     Indication: BIPOLAR DISORDER
     Route: 048

REACTIONS (10)
  - Drug eruption [Recovering/Resolving]
  - Pruritus generalised [Unknown]
  - Papule [Unknown]
  - Pyrexia [Unknown]
  - Blister [Unknown]
  - Hyperaemia [Unknown]
  - Rash [Unknown]
  - Pruritus [Unknown]
  - Upper respiratory tract congestion [Unknown]
  - Drug interaction [Unknown]
